FAERS Safety Report 23484295 (Version 1)
Quarter: 2024Q1

REPORT INFORMATION
  Report Type: Spontaneous
  Country: US (occurrence: US)
  Receive Date: 20240206
  Receipt Date: 20240206
  Transmission Date: 20240409
  Serious: No
  Sender: FDA-Public Use
  Company Number: US-BIOGEN-2020BI00869604

PATIENT
  Sex: Female

DRUGS (1)
  1. TYSABRI [Suspect]
     Active Substance: NATALIZUMAB
     Indication: Relapsing multiple sclerosis
     Route: 050
     Dates: start: 20180508

REACTIONS (7)
  - Multiple sclerosis relapse [Unknown]
  - Multiple sclerosis [Unknown]
  - Visual impairment [Unknown]
  - Gait disturbance [Unknown]
  - Cognitive disorder [Unknown]
  - Memory impairment [Unknown]
  - Facial paresis [Recovered/Resolved]

NARRATIVE: CASE EVENT DATE: 20210101
